FAERS Safety Report 6170838-1 (Version None)
Quarter: 2009Q2

REPORT INFORMATION
  Report Type: 
  Country: None (occurrence: None)
  Receive Date: 20090427
  Receipt Date: 20090417
  Transmission Date: 20091009
  Serious: Yes (Other)
  Sender: FDA-Public Use
  Company Number: TRP_06177_2009

PATIENT
  Sex: Female
  Weight: 74.6167 kg

DRUGS (9)
  1. RIBASPHERE [Suspect]
     Indication: HEPATITIS C
     Dosage: (1000 MG, DAILY ORAL)
     Route: 048
     Dates: start: 20081108, end: 20090104
  2. PEGASYS [Suspect]
     Indication: HEPATITIS C
     Dosage: (180 ?G 1X/WEEK SUBCUTANEOUS)
     Route: 058
     Dates: start: 20081108, end: 20090104
  3. TRAZODONE HCL [Concomitant]
  4. RANITIDINE [Concomitant]
  5. LYRICA [Concomitant]
  6. INSULIN [Concomitant]
  7. MAXZIDE [Concomitant]
  8. CITALOPRAM HYDROBROMIDE [Concomitant]
  9. CELEXA [Concomitant]

REACTIONS (13)
  - AGEUSIA [None]
  - ANGER [None]
  - ANXIETY [None]
  - DEHYDRATION [None]
  - DEPRESSION [None]
  - DYSPNOEA [None]
  - INSOMNIA [None]
  - MENTAL DISORDER [None]
  - NAUSEA [None]
  - PRURITUS [None]
  - SUICIDAL IDEATION [None]
  - TEARFULNESS [None]
  - VOMITING [None]
